FAERS Safety Report 18701693 (Version 1)
Quarter: 2021Q1

REPORT INFORMATION
  Report Type: Spontaneous
  Country: KR (occurrence: KR)
  Receive Date: 20210105
  Receipt Date: 20210105
  Transmission Date: 20210419
  Serious: Yes (Hospitalization, Other)
  Sender: FDA-Public Use
  Company Number: KR-LUPIN PHARMACEUTICALS INC.-2020-02573

PATIENT
  Age: 49 Year
  Sex: Male

DRUGS (5)
  1. MEMANTINE. [Concomitant]
     Active Substance: MEMANTINE
     Indication: COGNITIVE DISORDER
  2. QUETIAPINE FUMARATE. [Suspect]
     Active Substance: QUETIAPINE FUMARATE
     Indication: BEHAVIOUR DISORDER
     Dosage: 25 MILLIGRAM, QD (ON HOSPITAL DAYS 1 AND 2)
     Route: 048
  3. MEMANTINE. [Concomitant]
     Active Substance: MEMANTINE
     Indication: CRANIOCEREBRAL INJURY
     Dosage: 20 MILLIGRAM, QD
     Route: 065
  4. QUETIAPINE FUMARATE. [Suspect]
     Active Substance: QUETIAPINE FUMARATE
     Indication: INSOMNIA
     Dosage: 50 MILLIGRAM, QD (50 MG ON THE NEXT SEVEN DAYS)
     Route: 048
  5. LEVETIRACETAM. [Concomitant]
     Active Substance: LEVETIRACETAM
     Indication: SEIZURE
     Dosage: 3000 MILLIGRAM, QD
     Route: 065

REACTIONS (1)
  - Inappropriate antidiuretic hormone secretion [Recovered/Resolved]
